FAERS Safety Report 20214730 (Version 1)
Quarter: 2021Q4

REPORT INFORMATION
  Report Type: Spontaneous
  Country: AE (occurrence: AE)
  Receive Date: 20211222
  Receipt Date: 20211222
  Transmission Date: 20220303
  Serious: Yes (Life-Threatening, Hospitalization)
  Sender: FDA-Public Use
  Company Number: AE-STRIDES ARCOLAB LIMITED-2021SP031217

PATIENT
  Age: 45 Year
  Sex: Male

DRUGS (5)
  1. MYCOPHENOLATE MOFETIL [Suspect]
     Active Substance: MYCOPHENOLATE MOFETIL
     Indication: Renal transplant
     Dosage: 1 GRAM, BID
     Route: 065
  2. MYCOPHENOLATE MOFETIL [Suspect]
     Active Substance: MYCOPHENOLATE MOFETIL
     Dosage: 500 MILLIGRAM, BID, DOSE REDUCED
     Route: 065
     Dates: start: 202004, end: 202005
  3. MYCOPHENOLATE MOFETIL [Suspect]
     Active Substance: MYCOPHENOLATE MOFETIL
     Dosage: UNK
     Route: 065
  4. CYCLOSPORINE [Suspect]
     Active Substance: CYCLOSPORINE
     Indication: Renal transplant
     Dosage: 125 MILLIGRAM, BID
     Route: 065
     Dates: end: 202005
  5. CYCLOSPORINE [Suspect]
     Active Substance: CYCLOSPORINE
     Dosage: 50 MILLIGRAM, BID
     Route: 065

REACTIONS (6)
  - Acute kidney injury [Recovered/Resolved]
  - COVID-19 pneumonia [Recovered/Resolved]
  - Septic shock [Recovered/Resolved]
  - Abscess bacterial [Recovered/Resolved]
  - Infection [Recovered/Resolved]
  - Bacterial infection [Recovered/Resolved]

NARRATIVE: CASE EVENT DATE: 20200401
